FAERS Safety Report 25230031 (Version 3)
Quarter: 2025Q2

REPORT INFORMATION
  Report Type: Report from Study
  Country: JP (occurrence: JP)
  Receive Date: 20250423
  Receipt Date: 20250620
  Transmission Date: 20250717
  Serious: Yes (Hospitalization)
  Sender: EISAI
  Company Number: JP-Eisai-202500920_LEN-EC_P_1

PATIENT
  Sex: Female

DRUGS (8)
  1. LENVATINIB [Suspect]
     Active Substance: LENVATINIB
     Indication: Endometrial cancer
     Dates: start: 20240813, end: 20241218
  2. LENVATINIB [Suspect]
     Active Substance: LENVATINIB
     Dates: start: 20250128, end: 20250220
  3. LENVATINIB [Suspect]
     Active Substance: LENVATINIB
     Dates: start: 20250311, end: 20250402
  4. LENVATINIB [Suspect]
     Active Substance: LENVATINIB
  5. KEYTRUDA [Suspect]
     Active Substance: PEMBROLIZUMAB
     Indication: Endometrial cancer
     Dosage: 7 COURSES
  6. KEYTRUDA [Suspect]
     Active Substance: PEMBROLIZUMAB
  7. CORTICOSTEROID NOS [Concomitant]
     Active Substance: CORTICOSTEROID NOS
     Indication: Myasthenia gravis
  8. CORTICOSTEROID NOS [Concomitant]
     Active Substance: CORTICOSTEROID NOS
     Indication: Colitis

REACTIONS (4)
  - Myasthenia gravis [Recovered/Resolved]
  - Rhabdomyolysis [Unknown]
  - Encephalitis [Recovered/Resolved]
  - Immune-mediated enterocolitis [Recovered/Resolved]

NARRATIVE: CASE EVENT DATE: 20241219
